FAERS Safety Report 10439252 (Version 3)
Quarter: 2015Q1

REPORT INFORMATION
  Report Type: Report from Study
  Country: US (occurrence: US)
  Receive Date: 20140908
  Receipt Date: 20150106
  Transmission Date: 20150720
  Serious: Yes (Life-Threatening)
  Sender: FDA-Public Use
  Company Number: US-SANOFI-AVENTIS-2013SA073134

PATIENT
  Age: 50 Year
  Sex: Female
  Weight: 104.32 kg

DRUGS (3)
  1. AUBAGIO [Suspect]
     Active Substance: TERIFLUNOMIDE
     Indication: MULTIPLE SCLEROSIS
     Route: 048
     Dates: start: 20130527
  2. AUBAGIO [Suspect]
     Active Substance: TERIFLUNOMIDE
     Indication: MULTIPLE SCLEROSIS
     Route: 048
     Dates: start: 20130415
  3. COPAXONE [Concomitant]
     Active Substance: GLATIRAMER ACETATE
     Indication: MULTIPLE SCLEROSIS
     Dates: start: 20050101, end: 20130513

REACTIONS (14)
  - Diarrhoea [Unknown]
  - Pain [Unknown]
  - Chills [Unknown]
  - Hypomenorrhoea [Unknown]
  - Constipation [Unknown]
  - Nausea [Unknown]
  - Hypoaesthesia [Unknown]
  - Menorrhagia [Unknown]
  - Sleep disorder [Unknown]
  - Arthralgia [Unknown]
  - Blood pressure increased [Unknown]
  - Diverticulitis [Unknown]
  - Amenorrhoea [Unknown]
  - Anaemia [Unknown]

NARRATIVE: CASE EVENT DATE: 20130505
